FAERS Safety Report 12493422 (Version 1)
Quarter: 2016Q2

REPORT INFORMATION
  Report Type: Spontaneous
  Country: SE (occurrence: SE)
  Receive Date: 20160623
  Receipt Date: 20160623
  Transmission Date: 20160815
  Serious: Yes (Hospitalization)
  Sender: FDA-Public Use
  Company Number: SE-BAYER-2016-115497

PATIENT
  Age: 50 Year
  Sex: Female

DRUGS (5)
  1. STIVARGA [Suspect]
     Active Substance: REGORAFENIB
     Indication: METASTASES TO LIVER
     Dosage: 160 MG DAILY DOSE
     Dates: start: 20160606, end: 20160606
  2. DOLCONTIN [Concomitant]
     Active Substance: MORPHINE
     Dosage: UNK
     Dates: start: 20160527
  3. STIVARGA [Suspect]
     Active Substance: REGORAFENIB
     Indication: METASTASES TO LUNG
     Dosage: 160 MG DAILY DOSE
     Dates: start: 20160530, end: 20160605
  4. STIVARGA [Suspect]
     Active Substance: REGORAFENIB
     Indication: RECTAL CANCER
     Dosage: 120 MG TABLETS DAILY
     Dates: start: 20160523, end: 20160529
  5. ANDAPSIN [Concomitant]
     Indication: ORAL PAIN
     Dosage: DISSOLVED IN WATER (RINSE THE MOUTH AND SPIT OUT
     Dates: start: 20160604

REACTIONS (5)
  - Fatigue [None]
  - Pyrexia [Recovered/Resolved]
  - Dizziness [None]
  - Urticaria [Recovering/Resolving]
  - Asthenia [None]

NARRATIVE: CASE EVENT DATE: 20160603
